FAERS Safety Report 23228119 (Version 2)
Quarter: 2023Q4

REPORT INFORMATION
  Report Type: Report from Study
  Country: NL (occurrence: NL)
  Receive Date: 20231125
  Receipt Date: 20231214
  Transmission Date: 20240110
  Serious: Yes (Other)
  Sender: FDA-Public Use
  Company Number: NL-002147023-NVSC2023NL249477

PATIENT
  Age: 62 Year
  Sex: Male

DRUGS (3)
  1. ILARIS [Suspect]
     Active Substance: CANAKINUMAB
     Indication: Familial mediterranean fever
     Dosage: 1 DOSAGE FORM, PER 4 WEEKS
     Route: 058
     Dates: start: 20200424
  2. ILARIS [Suspect]
     Active Substance: CANAKINUMAB
     Dosage: 1 DOSAGE FORM, PER 4 WEEKS
     Route: 058
     Dates: start: 20231025
  3. ILARIS [Suspect]
     Active Substance: CANAKINUMAB
     Dosage: 1 DOSAGE FORM, PER 4 WEEKS
     Route: 058
     Dates: start: 20231121

REACTIONS (1)
  - Pneumonia [Not Recovered/Not Resolved]

NARRATIVE: CASE EVENT DATE: 20231121
